FAERS Safety Report 16289671 (Version 1)
Quarter: 2019Q2

REPORT INFORMATION
  Report Type: Spontaneous
  Country: US (occurrence: US)
  Receive Date: 20190509
  Receipt Date: 20190509
  Transmission Date: 20190711
  Serious: Yes (Hospitalization)
  Sender: FDA-Public Use
  Company Number: US-GW PHARMA-201905USGW1287

PATIENT

DRUGS (3)
  1. EPIDIOLEX [Suspect]
     Active Substance: CANNABIDIOL
     Indication: LENNOX-GASTAUT SYNDROME
     Dosage: 500 MILLIGRAM, BID
     Route: 048
     Dates: start: 20190123
  2. ONFI [Suspect]
     Active Substance: CLOBAZAM
     Indication: PRODUCT USED FOR UNKNOWN INDICATION
     Dosage: UNK
     Route: 065
     Dates: end: 201904
  3. ONFI [Suspect]
     Active Substance: CLOBAZAM
     Dosage: UNK
     Route: 065
     Dates: start: 201904

REACTIONS (4)
  - Pneumonia [Unknown]
  - Hepatic enzyme increased [Unknown]
  - Ataxia [Unknown]
  - Dizziness [Unknown]

NARRATIVE: CASE EVENT DATE: 201904
